FAERS Safety Report 15044142 (Version 1)
Quarter: 2018Q2

REPORT INFORMATION
  Report Type: Spontaneous
  Country: TW (occurrence: TW)
  Receive Date: 20180621
  Receipt Date: 20180621
  Transmission Date: 20180711
  Serious: Yes (Other)
  Sender: FDA-Public Use
  Company Number: PHHY2018TW022798

PATIENT
  Age: 36 Year
  Sex: Female
  Weight: 51 kg

DRUGS (9)
  1. LETROZOLE. [Suspect]
     Active Substance: LETROZOLE
     Dosage: 2.5 MG, QD
     Route: 048
     Dates: start: 20171118
  2. LOSARTAN. [Concomitant]
     Active Substance: LOSARTAN
     Indication: HYPERTENSION
     Dosage: 25 MG, QD
     Route: 048
     Dates: start: 20160316, end: 20171003
  3. IOPROMIDE. [Concomitant]
     Active Substance: IOPROMIDE
     Indication: PRODUCT USED FOR UNKNOWN INDICATION
     Route: 065
  4. IBRANCE [Suspect]
     Active Substance: PALBOCICLIB
     Dosage: 125 MG, QD
     Route: 048
     Dates: start: 20180201, end: 20180220
  5. DOCETAXEL. [Concomitant]
     Active Substance: DOCETAXEL
     Indication: BREAST CANCER
     Route: 065
  6. LETROZOLE. [Suspect]
     Active Substance: LETROZOLE
     Indication: BREAST CANCER
     Dosage: UNK
     Route: 048
     Dates: start: 20160316, end: 20171003
  7. IBRANCE [Suspect]
     Active Substance: PALBOCICLIB
     Indication: BREAST CANCER
     Dosage: 125 MG, QD
     Route: 048
     Dates: start: 20171118, end: 20171222
  8. ZOLADEX [Suspect]
     Active Substance: GOSERELIN ACETATE
     Indication: BREAST CANCER
     Dosage: UNK
     Route: 065
     Dates: start: 20160316, end: 20171003
  9. IBRANCE [Suspect]
     Active Substance: PALBOCICLIB
     Dosage: 125 MG, QD
     Route: 048
     Dates: start: 20180309, end: 20180322

REACTIONS (10)
  - Oesophageal ulcer [Unknown]
  - Dysgeusia [Unknown]
  - White blood cell count decreased [Unknown]
  - Pharyngitis [Unknown]
  - Stomatitis [Unknown]
  - Toothache [Unknown]
  - Muscle tightness [Unknown]
  - Metastases to spine [Unknown]
  - Haemorrhoidal haemorrhage [Unknown]
  - Alopecia [Unknown]

NARRATIVE: CASE EVENT DATE: 20180201
